FAERS Safety Report 15627057 (Version 1)
Quarter: 2018Q4

REPORT INFORMATION
  Report Type: Spontaneous
  Country: US (occurrence: US)
  Receive Date: 20181116
  Receipt Date: 20181116
  Transmission Date: 20190205
  Serious: Yes (Other)
  Sender: FDA-Public Use
  Company Number: US-MYLANLABS-2018M1085887

PATIENT
  Age: 47 Year
  Sex: Male
  Weight: 104 kg

DRUGS (2)
  1. CHLORTALIDONE [Suspect]
     Active Substance: CHLORTHALIDONE
     Indication: DIURETIC THERAPY
     Dosage: UNK (3 YEARS)
     Route: 048
     Dates: start: 2013
  2. CHLORTALIDONE [Suspect]
     Active Substance: CHLORTHALIDONE
     Route: 048

REACTIONS (10)
  - Weight decreased [Unknown]
  - Drug dependence [Not Recovered/Not Resolved]
  - Injury [Not Recovered/Not Resolved]
  - Bile duct obstruction [Recovered/Resolved]
  - Amnesia [Not Recovered/Not Resolved]
  - Cyst [Recovered/Resolved]
  - Pancreatitis necrotising [Recovered/Resolved]
  - Pulmonary embolism [Recovered/Resolved]
  - Pain [Not Recovered/Not Resolved]
  - Vomiting [Recovered/Resolved]

NARRATIVE: CASE EVENT DATE: 20170226
